FAERS Safety Report 5194707-9 (Version None)
Quarter: 2006Q4

REPORT INFORMATION
  Report Type: 
  Country: None (occurrence: None)
  Receive Date: 20061229
  Receipt Date: 20061220
  Transmission Date: 20070319
  Serious: Yes (Other)
  Sender: FDA-Public Use
  Company Number: PHBS2006BR19755

PATIENT
  Age: 6 Year
  Sex: Female

DRUGS (2)
  1. TEGRETOL [Suspect]
  2. CLONAZEPAM [Concomitant]

REACTIONS (4)
  - CONVULSION [None]
  - DIZZINESS [None]
  - HYPERSOMNIA [None]
  - SOMNOLENCE [None]
